FAERS Safety Report 24834588 (Version 2)
Quarter: 2025Q1

REPORT INFORMATION
  Report Type: Report from Study
  Country: CA (occurrence: CA)
  Receive Date: 20250113
  Receipt Date: 20250310
  Transmission Date: 20250408
  Serious: Yes (Other)
  Sender: JOHNSON AND JOHNSON
  Company Number: CA-JNJFOC-20250115375

PATIENT
  Age: 73 Year
  Sex: Female
  Weight: 63.9 kg

DRUGS (2)
  1. REMICADE [Suspect]
     Active Substance: INFLIXIMAB
     Indication: Colitis ulcerative
     Route: 041
     Dates: start: 20200825
  2. REMICADE [Suspect]
     Active Substance: INFLIXIMAB
     Route: 041

REACTIONS (3)
  - Hypertension [Recovering/Resolving]
  - Oral herpes [Recovering/Resolving]
  - Blood potassium decreased [Unknown]

NARRATIVE: CASE EVENT DATE: 20241201
